FAERS Safety Report 18596759 (Version 1)
Quarter: 2020Q4

REPORT INFORMATION
  Report Type: Spontaneous
  Country: DE (occurrence: DE)
  Receive Date: 20201209
  Receipt Date: 20201209
  Transmission Date: 20210114
  Serious: Yes (Life-Threatening)
  Sender: FDA-Public Use
  Company Number: DE-MYLANLABS-2020M1100148

PATIENT

DRUGS (15)
  1. PREDNISOLONE. [Suspect]
     Active Substance: PREDNISOLONE
     Dosage: 3 MILLIGRAM, Q2W(3 MG ICV, EVERY 2 WEEKS (CYCLE 5, DAY 2-4) + MTX)
  2. ARA-C [Suspect]
     Active Substance: CYTARABINE
     Dosage: 10 MILLIGRAM, Q2W(EVERY 2 WEEKS (CYCLE 5, DAY 5) )
  3. METHOTREXATE. [Suspect]
     Active Substance: METHOTREXATE
     Indication: CENTRAL NERVOUS SYSTEM LYMPHOMA
     Dosage: 4000 MILLIGRAM/SQ. METER, Q2W,  EVERY 2 WEEKS (CYCLE 5, DAY 1)
     Route: 042
  4. METHOTREXATE. [Suspect]
     Active Substance: METHOTREXATE
     Dosage: 2.5 MILLIGRAM, Q2W(2.5 MG, EVERY 3 WEEKS (CYCLE 4 + 6, DAY 3-5) + PREDNISOLONE)
     Route: 042
  5. PREDNISOLONE. [Suspect]
     Active Substance: PREDNISOLONE
     Indication: CENTRAL NERVOUS SYSTEM LYMPHOMA
     Dosage: 3 MILLIGRAM, Q3W (3 MG ICV, EVERY 3 WEEKS (CYCLE 4 + 6, DAY 3-5) + MTX)
  6. ARA-C [Suspect]
     Active Substance: CYTARABINE
     Indication: CENTRAL NERVOUS SYSTEM LYMPHOMA
     Dosage: 3000 MILLIGRAM/SQ. METER, Q3W(3000 MG/M2, EVERY 3 WEEKS (CYCLE 4 + 6, DAY 1-2))
     Route: 042
  7. SULFAMETHOXAZOLE W/TRIMETHOPRIM [Suspect]
     Active Substance: SULFAMETHOXAZOLE\TRIMETHOPRIM
     Indication: PRODUCT USED FOR UNKNOWN INDICATION
     Dosage: UNK UNK, CYCLE(AT EACH CYCLE)
  8. METHOTREXATE. [Suspect]
     Active Substance: METHOTREXATE
     Dosage: 4000 MILLIGRAM/SQ. METER, Q2W(4000 MG/M2, EVERY 2 WEEKS (CYCLE 1-3, DAY 1))
     Route: 042
  9. IFOSFAMIDE. [Suspect]
     Active Substance: IFOSFAMIDE
     Dosage: 800 MILLIGRAM/SQ. METER, Q2W(800 MG/M2, EVERY 2 WEEKS (CYCLE 1-3, DAY 2-4))
     Route: 042
  10. METHOTREXATE. [Suspect]
     Active Substance: METHOTREXATE
     Dosage: 2.5 MILLIGRAM, Q2W(2.5 MG, EVERY 2 WEEKS (CYCLE 5, DAY 2-4) + PREDNISOLONE)
     Route: 042
  11. ACICLOVIR [Suspect]
     Active Substance: ACYCLOVIR
     Indication: PRODUCT USED FOR UNKNOWN INDICATION
     Dosage: UNK UNK, CYCLE(AT EACH CYCLE)
  12. IFOSFAMIDE. [Suspect]
     Active Substance: IFOSFAMIDE
     Indication: CENTRAL NERVOUS SYSTEM LYMPHOMA
     Dosage: 800 MILLIGRAM/SQ. METER, Q2W (EVERY 2 WEEKS (CYCLE 5, DAY 2-4))
     Route: 042
  13. RITUXIMAB. [Suspect]
     Active Substance: RITUXIMAB
     Indication: CENTRAL NERVOUS SYSTEM LYMPHOMA
     Dosage: 375 MILLIGRAM/SQ. METER, Q2W(375 MG/M2, EVERY 2 WEEKS (CYCLE 1-3, DAY 0))
     Route: 042
  14. ARA-C [Suspect]
     Active Substance: CYTARABINE
     Indication: PRODUCT USED FOR UNKNOWN INDICATION
     Dosage: 10 MILLIGRAM, Q3W(10 MG, EVERY 3 WEEKS (CYCLE 4 + 6, DAY 6))
  15. G-CSF [Suspect]
     Active Substance: GRANULOCYTE COLONY-STIMULATING FACTOR NOS
     Indication: PROPHYLAXIS
     Dosage: UNK UNK, CYCLE(AT EACH CYCLE)

REACTIONS (1)
  - Lymphopenia [Unknown]
